FAERS Safety Report 24136040 (Version 2)
Quarter: 2024Q3

REPORT INFORMATION
  Report Type: Spontaneous
  Country: US (occurrence: US)
  Receive Date: 20240725
  Receipt Date: 20240730
  Transmission Date: 20241017
  Serious: Yes (Other)
  Sender: PFIZER
  Company Number: US-PFIZER INC-PV202300207399

PATIENT
  Age: 82 Year
  Sex: Male

DRUGS (1)
  1. CIBINQO [Suspect]
     Active Substance: ABROCITINIB
     Indication: Eczema
     Dosage: 100 MG
     Route: 048

REACTIONS (1)
  - Cataract [Unknown]

NARRATIVE: CASE EVENT DATE: 20240724
